FAERS Safety Report 6213321-7 (Version None)
Quarter: 2009Q2

REPORT INFORMATION
  Report Type: 
  Country: None (occurrence: None)
  Receive Date: 20090601
  Receipt Date: 20090519
  Transmission Date: 20091009
  Serious: Yes (Hospitalization)
  Sender: FDA-Public Use
  Company Number: 2009-01448

PATIENT
  Age: 67 Year
  Sex: Male
  Weight: 55 kg

DRUGS (9)
  1. VELCADE [Suspect]
     Indication: MULTIPLE MYELOMA
     Dosage: 1.3 MG/M2, INTRAVENOUS
     Route: 042
     Dates: start: 20090306, end: 20090409
  2. ALKERAN [Suspect]
     Indication: MULTIPLE MYELOMA
     Dosage: 9 MG/M2, ORAL
     Route: 048
     Dates: start: 20090306, end: 20090309
  3. PREDNISOLONE TAB [Suspect]
     Indication: MULTIPLE MYELOMA
     Dosage: 60 MG/M2, ORAL
     Route: 048
     Dates: start: 20090306, end: 20090309
  4. LANSOPRAZOLE [Concomitant]
  5. ACYCLOVIR [Concomitant]
  6. DEPAS (ETIZOLAM) [Concomitant]
  7. PURSENNID (SENNA LEAF) [Concomitant]
  8. POSTERISAN (PHENOL, ESCHERICHIA COLI, LYOPHILIZED) [Concomitant]
  9. KYTRIL [Concomitant]

REACTIONS (2)
  - ERYTHEMA MULTIFORME [None]
  - PRURITUS [None]
